FAERS Safety Report 8794743 (Version 2)
Quarter: 2012Q4

REPORT INFORMATION
  Report Type: 
  Country: US (occurrence: US)
  Receive Date: 20120917
  Receipt Date: 20120921
  Transmission Date: 20130627
  Serious: Yes (Other)
  Sender: FDA-Public Use
  Company Number: CHPA2012US019599

PATIENT
  Age: 61 Year
  Sex: Female

DRUGS (3)
  1. PREVACID 24HR 15MG [Suspect]
     Indication: PROPHYLAXIS
     Dosage: 15 mg BID
     Route: 048
     Dates: start: 2009
  2. PREVACID 24HR 15MG [Suspect]
     Dosage: 15 mg a day
     Route: 048
  3. PREVACID 24HR 15MG [Suspect]
     Dosage: 30 mg, BID
     Route: 048

REACTIONS (6)
  - Laboratory test abnormal [Recovered/Resolved]
  - Off label use [Unknown]
  - Prescribed overdose [Unknown]
  - Therapeutic response unexpected [Unknown]
  - Treatment noncompliance [Unknown]
  - Incorrect drug administration duration [Unknown]
